FAERS Safety Report 7291248-X (Version None)
Quarter: 2011Q1

REPORT INFORMATION
  Report Type: 
  Country: None (occurrence: None)
  Receive Date: 20110214
  Receipt Date: 20110208
  Transmission Date: 20110831
  Serious: Yes (Other)
  Sender: FDA-Public Use
  Company Number: US-PFIZER INC-2011028497

PATIENT
  Sex: Female
  Weight: 58 kg

DRUGS (1)
  1. SYNAREL [Suspect]
     Indication: ENDOMETRIOSIS
     Dosage: UNK
     Route: 045
     Dates: start: 20110125, end: 20110207

REACTIONS (1)
  - BLINDNESS TRANSIENT [None]
